FAERS Safety Report 12630537 (Version 4)
Quarter: 2016Q3

REPORT INFORMATION
  Report Type: Spontaneous
  Country: DE (occurrence: DE)
  Receive Date: 20160808
  Receipt Date: 20160921
  Transmission Date: 20161109
  Serious: Yes (Other)
  Sender: FDA-Public Use
  Company Number: DE-B.I. PHARMACEUTICALS,INC./RIDGEFIELD-2016-BI-50301DE

PATIENT
  Age: 51 Year
  Sex: Male
  Weight: 79 kg

DRUGS (6)
  1. GILOTRIF [Suspect]
     Active Substance: AFATINIB
     Dosage: 30 MG
     Route: 048
     Dates: start: 20150717, end: 20160407
  2. GILOTRIF [Suspect]
     Active Substance: AFATINIB
     Dosage: 20 MG
     Route: 048
     Dates: start: 20160408, end: 20160609
  3. XGEVA [Concomitant]
     Active Substance: DENOSUMAB
     Indication: NON-SMALL CELL LUNG CANCER
     Route: 065
     Dates: start: 2015, end: 201604
  4. GILOTRIF [Suspect]
     Active Substance: AFATINIB
     Indication: NON-SMALL CELL LUNG CANCER STAGE IV
     Dosage: 40 MG
     Route: 048
     Dates: start: 20150529, end: 20150616
  5. GILOTRIF [Suspect]
     Active Substance: AFATINIB
     Dosage: 20 MG
     Route: 048
     Dates: start: 20150617
  6. ZOLEDRON ACID MEDAC [Concomitant]
     Indication: NON-SMALL CELL LUNG CANCER
     Dosage: STRENGTH: 4 MG / 5 ML
     Route: 042
     Dates: start: 201605

REACTIONS (7)
  - Acne [Recovered/Resolved]
  - Metastases to pelvis [Recovered/Resolved]
  - Arthralgia [Unknown]
  - Blood test abnormal [Recovered/Resolved]
  - Malignant neoplasm progression [Unknown]
  - Metastases to pelvis [Recovered/Resolved]
  - Fatigue [Recovered/Resolved]

NARRATIVE: CASE EVENT DATE: 20150608
